FAERS Safety Report 6904213-6 (Version None)
Quarter: 2010Q3

REPORT INFORMATION
  Report Type: 
  Country: None (occurrence: None)
  Receive Date: 20100804
  Receipt Date: 20090330
  Transmission Date: 20110219
  Serious: No
  Sender: FDA-Public Use
  Company Number: US-PFIZER INC-2009166665

PATIENT
  Sex: Male
  Weight: 130.2 kg

DRUGS (8)
  1. LYRICA [Suspect]
     Indication: TUMOUR PAIN
     Dosage: 150 MG, 2X/DAY
     Dates: start: 20080901
  2. PREVACID [Concomitant]
     Dosage: UNK
  3. VALSARTAN [Concomitant]
     Dosage: UNK
  4. DARVOCET [Concomitant]
     Dosage: UNK
  5. PERCOCET [Concomitant]
     Dosage: UNK
  6. CIPROFLOXACIN [Concomitant]
     Dosage: UNK
  7. AMOXICILLIN [Concomitant]
     Dosage: UNK
  8. MORPHINE [Concomitant]
     Dosage: UNK

REACTIONS (2)
  - DRUG LEVEL INCREASED [None]
  - DRUG SCREEN POSITIVE [None]
